FAERS Safety Report 7209538-5 (Version None)
Quarter: 2011Q1

REPORT INFORMATION
  Report Type: 
  Country: None (occurrence: None)
  Receive Date: 20110103
  Receipt Date: 20110103
  Transmission Date: 20110831
  Serious: Yes (Hospitalization)
  Sender: FDA-Public Use
  Company Number: None

PATIENT
  Age: 61 Year
  Sex: Male
  Weight: 108 kg

DRUGS (3)
  1. ASPIRIN [Suspect]
  2. WARFARIN SODIUM [Suspect]
     Dates: start: 20101030
  3. MELOXICAM [Suspect]

REACTIONS (2)
  - HAEMATOCRIT DECREASED [None]
  - GASTRIC HAEMORRHAGE [None]
